FAERS Safety Report 5009427-0 (Version None)
Quarter: 2006Q2

REPORT INFORMATION
  Report Type: 
  Country: None (occurrence: None)
  Receive Date: 20060522
  Receipt Date: 20060509
  Transmission Date: 20061013
  Serious: Yes (Hospitalization)
  Sender: FDA-Public Use
  Company Number: 2006063184

PATIENT
  Age: 60 Year
  Sex: Female
  Weight: 95.2554 kg

DRUGS (1)
  1. CELEBREX [Suspect]
     Indication: ARTHRITIS
     Dosage: 400 MG (200 MG, 2 IN 1 D),
     Dates: start: 19990325

REACTIONS (5)
  - ASTHMA [None]
  - BLOOD CHOLESTEROL INCREASED [None]
  - COMPUTERISED TOMOGRAM ABNORMAL [None]
  - MYOCARDIAL INFARCTION [None]
  - PNEUMONIA [None]
